FAERS Safety Report 4421643-5 (Version None)
Quarter: 2004Q3

REPORT INFORMATION
  Report Type: 
  Country: None (occurrence: None)
  Receive Date: 20040809
  Receipt Date: 20040809
  Transmission Date: 20050211
  Serious: Yes (Other)
  Sender: FDA-Public Use
  Company Number: None

PATIENT
  Sex: Male
  Weight: 58.9676 kg

DRUGS (2)
  1. OXYCONTIN [Suspect]
     Indication: BACK PAIN
     Dosage: 80 MG ONE PO BID
     Route: 048
     Dates: start: 20040507, end: 20040525
  2. OXYCONTIN [Suspect]
     Indication: PAIN IN EXTREMITY
     Dosage: 80 MG ONE PO BID
     Route: 048
     Dates: start: 20040507, end: 20040525

REACTIONS (2)
  - DRUG INEFFECTIVE [None]
  - PHARMACEUTICAL PRODUCT COMPLAINT [None]
